FAERS Safety Report 11145402 (Version 2)
Quarter: 2015Q2

REPORT INFORMATION
  Report Type: Report from Study
  Country: ES (occurrence: ES)
  Receive Date: 20150528
  Receipt Date: 20150609
  Transmission Date: 20150821
  Serious: Yes (Hospitalization)
  Sender: FDA-Public Use
  Company Number: ES-ABBVIE-15P-144-1396245-00

PATIENT
  Age: 55 Year
  Sex: Female

DRUGS (3)
  1. PROVISACOR [Concomitant]
     Active Substance: ROSUVASTATIN
     Indication: HYPERCHOLESTEROLAEMIA
     Dosage: 10 MILLIGRAM
  2. DUODOPA [Suspect]
     Active Substance: CARBIDOPA\LEVODOPA
     Indication: PARKINSON^S DISEASE
     Dosage: TOTAL DOSE 48.8 ML IN 24 HOURS
     Route: 050
     Dates: start: 20150519, end: 20150520
  3. VELMETIA [Concomitant]
     Active Substance: METFORMIN\SITAGLIPTIN
     Indication: DIABETES MELLITUS
     Dosage: 40/1000 MG

REACTIONS (15)
  - Ear pain [Unknown]
  - Odynophagia [Unknown]
  - Motor dysfunction [Unknown]
  - Restless legs syndrome [Unknown]
  - Delirium [Unknown]
  - Agitation [Unknown]
  - Dermatitis exfoliative [Unknown]
  - Ocular hyperaemia [Unknown]
  - Arthralgia [Recovered/Resolved]
  - Mobility decreased [Unknown]
  - Hypertension [Unknown]
  - Hallucination [Unknown]
  - Acute psychosis [Recovered/Resolved]
  - Rash papular [Unknown]
  - Body temperature increased [Unknown]

NARRATIVE: CASE EVENT DATE: 20150520
